FAERS Safety Report 8986357 (Version 2)
Quarter: 2013Q1

REPORT INFORMATION
  Report Type: Spontaneous
  Country: DE (occurrence: DE)
  Receive Date: 20121227
  Receipt Date: 20130221
  Transmission Date: 20140127
  Serious: Yes (Hospitalization, Other)
  Sender: FDA-Public Use
  Company Number: DE-ACTELION-A-CH2012-76605

PATIENT
  Age: 12 Year
  Sex: Female
  Weight: 40 kg

DRUGS (7)
  1. TRACLEER [Suspect]
     Indication: PULMONARY ARTERIAL HYPERTENSION
     Dosage: 125 MG, BID
     Route: 048
     Dates: start: 201203, end: 20121218
  2. TRACLEER [Suspect]
     Dosage: 62.5 MG, BID
     Route: 048
     Dates: end: 2012
  3. TRACLEER [Suspect]
     Dosage: 62.5 MG, BID
     Route: 048
     Dates: start: 20121219
  4. REVATIO [Concomitant]
  5. INSPRA [Concomitant]
  6. ASS [Concomitant]
  7. LANITOP [Concomitant]

REACTIONS (6)
  - Left ventricular dysfunction [Unknown]
  - Dilatation ventricular [Unknown]
  - Condition aggravated [Unknown]
  - General physical health deterioration [Not Recovered/Not Resolved]
  - Oxygen consumption increased [Not Recovered/Not Resolved]
  - Cyanosis [Not Recovered/Not Resolved]
